FAERS Safety Report 6431452-3 (Version None)
Quarter: 2009Q4

REPORT INFORMATION
  Report Type: 
  Country: None (occurrence: None)
  Receive Date: 20091106
  Receipt Date: 20091102
  Transmission Date: 20100525
  Serious: Yes (Hospitalization)
  Sender: FDA-Public Use
  Company Number: DE-WYE-G04769109

PATIENT
  Sex: Male

DRUGS (9)
  1. BENEFIX [Suspect]
     Indication: FACTOR IX DEFICIENCY
     Dosage: INITIAL DOSE OF 500 IU
     Route: 042
     Dates: start: 20071219, end: 20071219
  2. BENEFIX [Suspect]
     Route: 042
     Dates: start: 20071220, end: 20071221
  3. BENEFIX [Suspect]
     Route: 042
     Dates: start: 20071222, end: 20080219
  4. BENEFIX [Suspect]
     Route: 042
     Dates: start: 20080220, end: 20080429
  5. BENEFIX [Suspect]
     Route: 042
     Dates: start: 20080430, end: 20080510
  6. BENEFIX [Suspect]
     Route: 042
     Dates: start: 20080511, end: 20080514
  7. BENEFIX [Suspect]
     Dosage: 500 IU 3X/WEEK
     Route: 042
     Dates: start: 20080515, end: 20090923
  8. BENEFIX [Suspect]
     Route: 042
     Dates: start: 20090924, end: 20090928
  9. BENEFIX [Suspect]
     Route: 042
     Dates: start: 20090929

REACTIONS (1)
  - DEVICE RELATED INFECTION [None]
